FAERS Safety Report 5221217-2 (Version None)
Quarter: 2007Q1

REPORT INFORMATION
  Report Type: 
  Country: None (occurrence: None)
  Receive Date: 20061201
  Receipt Date: 20060701
  Transmission Date: 20070707
  Serious: No
  Sender: FDA-Public Use
  Company Number: 2006PV015319

PATIENT
  Age: 62 Year
  Sex: Female
  Weight: 104.3273 kg

DRUGS (5)
  1. BYETTA [Suspect]
     Indication: DIABETES MELLITUS NON-INSULIN-DEPENDENT
     Dosage: 5 MCG;BID;SC
     Route: 058
     Dates: start: 20060601
  2. LANTUS [Concomitant]
  3. AMARYL [Concomitant]
  4. REMERON [Concomitant]
  5. AMITRIPTYLINE HCL [Concomitant]

REACTIONS (3)
  - BLOOD GLUCOSE INCREASED [None]
  - DRY MOUTH [None]
  - NAUSEA [None]
